FAERS Safety Report 6826534-8 (Version None)
Quarter: 2010Q3

REPORT INFORMATION
  Report Type: 
  Country: None (occurrence: None)
  Receive Date: 20100709
  Receipt Date: 20100628
  Transmission Date: 20110219
  Serious: Yes (Hospitalization)
  Sender: FDA-Public Use
  Company Number: PHHY2010JP42972

PATIENT
  Sex: Male

DRUGS (3)
  1. TEGRETOL [Suspect]
     Indication: EPILEPSY
     Dosage: 1 DF, QD
     Route: 048
     Dates: start: 20100430, end: 20100506
  2. TEGRETOL [Suspect]
     Dosage: 2 DF, BID
     Route: 048
     Dates: start: 20100507, end: 20100520
  3. TEGRETOL [Suspect]
     Dosage: 2 DF, QD
     Route: 048
     Dates: start: 20100521, end: 20100603

REACTIONS (3)
  - ECZEMA [None]
  - OTORRHOEA [None]
  - PRURITUS [None]
